FAERS Safety Report 11363300 (Version 1)
Quarter: 2015Q3

REPORT INFORMATION
  Report Type: Spontaneous
  Country: DE (occurrence: DE)
  Receive Date: 20150811
  Receipt Date: 20150811
  Transmission Date: 20151125
  Serious: Yes (Life-Threatening, Hospitalization)
  Sender: FDA-Public Use
  Company Number: DE-009507513-1508DEU002643

PATIENT
  Age: 70 Year
  Sex: Male

DRUGS (15)
  1. LEPONEX [Suspect]
     Active Substance: CLOZAPINE
     Dosage: 25 MG, QD
     Route: 048
     Dates: start: 20041105, end: 20041109
  2. LEPONEX [Suspect]
     Active Substance: CLOZAPINE
     Dosage: 50 MG, QD
     Route: 048
     Dates: start: 20041119
  3. BENALAPRIL [Suspect]
     Active Substance: ENALAPRIL MALEATE
     Dosage: 2.5 MG, QD
     Route: 048
  4. LEPONEX [Suspect]
     Active Substance: CLOZAPINE
     Dosage: 37.5 MG, QD
     Route: 048
     Dates: start: 20041110, end: 20041118
  5. DOCITON [Suspect]
     Active Substance: PROPRANOLOL HYDROCHLORIDE
     Dosage: 80 MG, QD
     Route: 048
  6. TAVOR [Suspect]
     Active Substance: LORAZEPAM
     Dosage: 1 MG IN 500ML INFUSION
     Route: 042
     Dates: start: 20041026, end: 20041112
  7. REMERGIL [Suspect]
     Active Substance: MIRTAZAPINE
     Dosage: 21MG IN 500ML INFUSION
     Route: 042
     Dates: start: 20041026, end: 20041111
  8. TAVOR [Suspect]
     Active Substance: LORAZEPAM
     Dosage: UNK
     Route: 042
     Dates: start: 20041117, end: 20041119
  9. REMERGIL [Suspect]
     Active Substance: MIRTAZAPINE
     Dosage: UNK
     Route: 042
     Dates: start: 20041117, end: 20041119
  10. LEPONEX [Suspect]
     Active Substance: CLOZAPINE
     Dosage: 12.5 MG, UNK
     Route: 048
     Dates: start: 20041029, end: 20041104
  11. DETRUSITOL [Concomitant]
     Active Substance: TOLTERODINE TARTRATE
     Dosage: 2 MG, QD
     Route: 048
  12. INSULIN [Concomitant]
     Active Substance: INSULIN NOS
     Dosage: 36 IU, UNK
  13. JONOSTERIL [Concomitant]
     Active Substance: CALCIUM ACETATE\MAGNESIUM ACETATE\POTASSIUM ACETATE\SODIUM ACETATE\SODIUM CHLORIDE
     Dosage: 1000 ML, UNK
     Route: 065
  14. EDRONAX [Suspect]
     Active Substance: REBOXETINE MESYLATE
     Dosage: 4 MG, QD
     Dates: start: 20041119
  15. LASIX [Suspect]
     Active Substance: FUROSEMIDE
     Dosage: 20 MG, QD
     Route: 048

REACTIONS (2)
  - Depressed level of consciousness [Recovered/Resolved]
  - Circulatory collapse [Recovered/Resolved]

NARRATIVE: CASE EVENT DATE: 20041119
